FAERS Safety Report 8524996-1 (Version None)
Quarter: 2012Q3

REPORT INFORMATION
  Report Type: 
  Country: None (occurrence: None)
  Receive Date: 20120720
  Receipt Date: 20120706
  Transmission Date: 20120928
  Serious: Yes (Other)
  Sender: FDA-Public Use
  Company Number: AU-MYLANLABS-2012S1014264

PATIENT
  Age: 51 Year
  Sex: Male

DRUGS (3)
  1. FLUOROURACIL [Suspect]
     Indication: COLON CANCER
     Route: 065
     Dates: end: 20091201
  2. FOLINIC ACID [Suspect]
     Indication: COLON CANCER
     Route: 065
     Dates: end: 20091201
  3. IRINOTECAN HCL [Suspect]
     Indication: COLON CANCER
     Route: 065
     Dates: end: 20091201

REACTIONS (1)
  - GUILLAIN-BARRE SYNDROME [None]
